FAERS Safety Report 6046685-8 (Version None)
Quarter: 2009Q1

REPORT INFORMATION
  Report Type: 
  Country: None (occurrence: None)
  Receive Date: 20090122
  Receipt Date: 20090114
  Transmission Date: 20090719
  Serious: Yes (Hospitalization, Other)
  Sender: FDA-Public Use
  Company Number: US-ABBOTT-09P-163-0495638-00

PATIENT
  Weight: 79.45 kg

DRUGS (15)
  1. HUMIRA [Suspect]
     Indication: OSTEOARTHRITIS
     Dates: start: 20040101
  2. HUMIRA [Suspect]
     Indication: RHEUMATOID ARTHRITIS
  3. LORA TAB [Concomitant]
     Indication: PAIN
     Dosage: EVERY 4 HOURS AS REQUIRED
  4. GLUCOVANCE [Concomitant]
     Indication: DIABETES MELLITUS
     Dosage: 2 IN MORNING AND 2 AT NIGHT
  5. SINEMET [Concomitant]
     Indication: DRUG USE FOR UNKNOWN INDICATION
     Dosage: FORM: 25/100 MG
  6. PREDNISONE [Concomitant]
     Indication: DRUG USE FOR UNKNOWN INDICATION
  7. FOLIC ACID [Concomitant]
     Indication: DRUG USE FOR UNKNOWN INDICATION
  8. DRISDOL [Concomitant]
     Indication: DRUG USE FOR UNKNOWN INDICATION
  9. LEXAPRO [Concomitant]
     Indication: DRUG USE FOR UNKNOWN INDICATION
  10. LOPRESSOR [Concomitant]
     Indication: DRUG USE FOR UNKNOWN INDICATION
  11. METHOTREXATE [Concomitant]
     Indication: DRUG USE FOR UNKNOWN INDICATION
  12. COZAAR [Concomitant]
     Indication: DRUG USE FOR UNKNOWN INDICATION
  13. VESICARE [Concomitant]
     Indication: BLADDER DISORDER
  14. AMOXICILLIN [Concomitant]
     Indication: DRUG USE FOR UNKNOWN INDICATION
     Route: 048
  15. VYTORIN [Concomitant]
     Indication: DRUG USE FOR UNKNOWN INDICATION
     Dosage: FORM: 10/20

REACTIONS (3)
  - OSTEOARTHRITIS [None]
  - PAIN [None]
  - PAIN IN EXTREMITY [None]
